FAERS Safety Report 12631718 (Version 2)
Quarter: 2016Q3

REPORT INFORMATION
  Report Type: Spontaneous
  Country: US (occurrence: US)
  Receive Date: 20160808
  Receipt Date: 20160808
  Transmission Date: 20161109
  Serious: No
  Sender: FDA-Public Use
  Company Number: US-BEH-2016060788

PATIENT
  Sex: Female
  Weight: 54 kg

DRUGS (26)
  1. HIZENTRA [Suspect]
     Active Substance: HUMAN IMMUNOGLOBULIN G
     Indication: SELECTIVE IGG SUBCLASS DEFICIENCY
     Route: 058
  2. SAVELLA [Concomitant]
     Active Substance: MILNACIPRAN HYDROCHLORIDE
  3. EPIPEN [Concomitant]
     Active Substance: EPINEPHRINE
  4. GLUCOSAMINE-CHONDR-MSM [Concomitant]
  5. FAMOTIDINE. [Concomitant]
     Active Substance: FAMOTIDINE
  6. CLONAZEPAM. [Concomitant]
     Active Substance: CLONAZEPAM
  7. HYDROCODONE-ACETAMINOPHEN [Concomitant]
     Active Substance: ACETAMINOPHEN\HYDROCODONE
  8. BACTRIM [Concomitant]
     Active Substance: SULFAMETHOXAZOLE\TRIMETHOPRIM
  9. LEXAPRO [Concomitant]
     Active Substance: ESCITALOPRAM OXALATE
  10. BAYER ASPIRIN [Concomitant]
     Active Substance: ASPIRIN
  11. IPRAT-ALBUT [Concomitant]
  12. METHADONE [Concomitant]
     Active Substance: METHADONE HYDROCHLORIDE
  13. HIZENTRA [Suspect]
     Active Substance: HUMAN IMMUNOGLOBULIN G
     Indication: IMMUNODEFICIENCY COMMON VARIABLE
     Route: 058
  14. ACETAMINOPHEN. [Concomitant]
     Active Substance: ACETAMINOPHEN
  15. GABAPENTIN. [Concomitant]
     Active Substance: GABAPENTIN
  16. COMPLETE MULTIVITAMIN [Concomitant]
     Active Substance: VITAMINS
  17. TIZANIDINE. [Concomitant]
     Active Substance: TIZANIDINE
  18. CALCIUM+VITAMIN D [Concomitant]
     Active Substance: CALCIUM\VITAMIN D
  19. AMBIEN [Concomitant]
     Active Substance: ZOLPIDEM TARTRATE
  20. ZINC [Concomitant]
     Active Substance: ZINC\ZINC CHLORIDE
  21. ECHINACEA [Concomitant]
     Active Substance: ECHINACEA, UNSPECIFIED
  22. VITAMINS, OTHER COMBINATIONS [Concomitant]
  23. ZINC+ECHINACEA [Concomitant]
  24. DIPHENHYDRAMINE. [Concomitant]
     Active Substance: DIPHENHYDRAMINE
  25. ZOLPIDEM [Concomitant]
     Active Substance: ZOLPIDEM\ZOLPIDEM TARTRATE
  26. DICLOFENAC [Concomitant]
     Active Substance: DICLOFENAC

REACTIONS (2)
  - Fungal infection [Unknown]
  - Alopecia [Unknown]
